FAERS Safety Report 11590076 (Version 1)
Quarter: 2015Q4

REPORT INFORMATION
  Report Type: Spontaneous
  Country: LV (occurrence: LV)
  Receive Date: 20151002
  Receipt Date: 20151002
  Transmission Date: 20160304
  Serious: Yes (Congenital Anomaly, Other)
  Sender: FDA-Public Use
  Company Number: LV-BAYER-2015-429030

PATIENT
  Age: 0 Day
  Sex: Male
  Weight: 3.68 kg

DRUGS (1)
  1. FLEREE [Suspect]
     Active Substance: LEVONORGESTREL
     Dosage: UNK
     Route: 064

REACTIONS (4)
  - Premature baby [Recovered/Resolved]
  - Maternal drugs affecting foetus [None]
  - Foetal exposure timing unspecified [None]
  - Ventricular septal defect [None]

NARRATIVE: CASE EVENT DATE: 20150911
